FAERS Safety Report 11611865 (Version 4)
Quarter: 2015Q4

REPORT INFORMATION
  Report Type: Report from Study
  Country: DE (occurrence: DE)
  Receive Date: 20151008
  Receipt Date: 20151214
  Transmission Date: 20160304
  Serious: Yes (Hospitalization)
  Sender: FDA-Public Use
  Company Number: DE-TEVA-598655ISR

PATIENT
  Age: 17 Year
  Sex: Female
  Weight: 52 kg

DRUGS (4)
  1. THIOTEPA RIEMSER [Suspect]
     Active Substance: THIOTEPA
     Dosage: 556 MILLIGRAM DAILY;
     Route: 042
     Dates: start: 20150725, end: 20150725
  2. TREOSULFAN MEDAC [Suspect]
     Active Substance: TREOSULFAN
     Dosage: 22.68 GRAM DAILY;
     Route: 042
     Dates: start: 20150722, end: 20150724
  3. FLUDARABINE TEVA [Suspect]
     Active Substance: FLUDARABINE PHOSPHATE
     Dosage: 48.6 MILLIGRAM DAILY;
     Route: 042
     Dates: start: 20150721, end: 20150725
  4. CICLOSPORIN [Concomitant]
     Active Substance: CYCLOSPORINE
     Indication: IMMUNOSUPPRESSION
     Dosage: 85 MILLIGRAM DAILY; 50 MG IN THE MORNING, 0 MG IN THE AFTERNOON, 35 MG IN THE EVENING
     Route: 048
     Dates: start: 20150727, end: 20150727

REACTIONS (4)
  - General physical health deterioration [Recovered/Resolved]
  - Pyrexia [Recovered/Resolved]
  - Lymphadenopathy [Recovered/Resolved]
  - Epstein-Barr virus infection [Recovered/Resolved]

NARRATIVE: CASE EVENT DATE: 20150925
